FAERS Safety Report 5019452-1 (Version None)
Quarter: 2006Q2

REPORT INFORMATION
  Report Type: 
  Country: None (occurrence: None)
  Receive Date: 20060531
  Receipt Date: 20060517
  Transmission Date: 20061013
  Serious: Yes (Other)
  Sender: FDA-Public Use
  Company Number: 2006P1000305

PATIENT
  Age: 86 Year
  Sex: Female

DRUGS (3)
  1. RETEPLASE (RETEPLASE) [Suspect]
     Dosage: 10 MCG X1 IV ; 10 MCG X1 IV
     Route: 042
  2. HEPARIN SODIUM [Suspect]
     Dosage: 5000 IU XI IV ; IV
     Route: 042
  3. ACETYLSALICYLIC ACID SRT [Concomitant]

REACTIONS (8)
  - ACTIVATED PARTIAL THROMBOPLASTIN TIME SHORTENED [None]
  - CARDIAC ARREST [None]
  - CHOROIDAL HAEMORRHAGE [None]
  - CORNEAL OEDEMA [None]
  - EYE PAIN [None]
  - INTERNATIONAL NORMALISED RATIO DECREASED [None]
  - PUPIL FIXED [None]
  - VISUAL DISTURBANCE [None]
